FAERS Safety Report 4431156-2 (Version None)
Quarter: 2004Q3

REPORT INFORMATION
  Report Type: 
  Country: None (occurrence: None)
  Receive Date: 20040824
  Receipt Date: 20040810
  Transmission Date: 20050211
  Serious: Yes (Death)
  Sender: FDA-Public Use
  Company Number: US-JNJFOC-20040601610

PATIENT
  Age: 60 Year
  Sex: Male

DRUGS (2)
  1. REMINYL [Suspect]
     Route: 049
     Dates: start: 20030101, end: 20040301
  2. NAMENDA [Suspect]
     Route: 065
     Dates: start: 20040101

REACTIONS (5)
  - AGGRESSION [None]
  - AGITATION [None]
  - COGNITIVE DISORDER [None]
  - CONDITION AGGRAVATED [None]
  - DEPRESSED LEVEL OF CONSCIOUSNESS [None]
